FAERS Safety Report 14928460 (Version 1)
Quarter: 2018Q2

REPORT INFORMATION
  Report Type: Spontaneous
  Country: US (occurrence: US)
  Receive Date: 20180523
  Receipt Date: 20180523
  Transmission Date: 20180711
  Serious: No
  Sender: FDA-Public Use
  Company Number: US-FDC LIMITED-2018RIS00124

PATIENT
  Age: 64 Year
  Sex: Female
  Weight: 67.12 kg

DRUGS (11)
  1. VITAMIN D [Concomitant]
     Active Substance: CHOLECALCIFEROL
  2. BIOTIN [Concomitant]
     Active Substance: BIOTIN
  3. TIMOLOL MALEATE. [Suspect]
     Active Substance: TIMOLOL MALEATE
     Indication: GLAUCOMA
     Dosage: 1 GTT, 1X/DAY
     Route: 047
     Dates: start: 20180213
  4. ATORVASTATIN [Concomitant]
     Active Substance: ATORVASTATIN
  5. SYNTHROID [Concomitant]
     Active Substance: LEVOTHYROXINE SODIUM
  6. VITAMIN B [Concomitant]
     Active Substance: VITAMIN B
  7. VITAMIN C [Concomitant]
     Active Substance: ASCORBIC ACID
  8. CALCIUM [Concomitant]
     Active Substance: CALCIUM
  9. OCUVITE [Concomitant]
     Active Substance: VITAMINS
  10. VITAMIN E [Concomitant]
     Active Substance: .ALPHA.-TOCOPHEROL
  11. COQ 10 [Concomitant]
     Active Substance: UBIDECARENONE

REACTIONS (3)
  - Underdose [Not Recovered/Not Resolved]
  - Application site pain [Not Recovered/Not Resolved]
  - Exposure via skin contact [Not Recovered/Not Resolved]

NARRATIVE: CASE EVENT DATE: 2018
